FAERS Safety Report 10516575 (Version 2)
Quarter: 2015Q1

REPORT INFORMATION
  Report Type: Spontaneous
  Country: US (occurrence: US)
  Receive Date: 20141014
  Receipt Date: 20150107
  Transmission Date: 20150720
  Serious: Yes (Hospitalization, Other)
  Sender: FDA-Public Use
  Company Number: US-GLAXOSMITHKLINE-US2014GSK005734

PATIENT
  Age: 69 Year
  Sex: Male

DRUGS (15)
  1. OMEPRAZOLE. [Concomitant]
     Active Substance: OMEPRAZOLE
  2. DIGOXIN. [Suspect]
     Active Substance: DIGOXIN
     Indication: ATRIAL FIBRILLATION
     Route: 065
  3. DILTIAZEM [Suspect]
     Active Substance: DILTIAZEM
     Indication: ATRIAL FIBRILLATION
     Dosage: UNK
  4. LISINOPRIL. [Concomitant]
     Active Substance: LISINOPRIL
  5. ATORVASTATIN [Concomitant]
     Active Substance: ATORVASTATIN
  6. AMIODARONE [Suspect]
     Active Substance: AMIODARONE
     Indication: ATRIAL FIBRILLATION
     Dosage: UNK
     Dates: start: 201011, end: 201012
  7. PROBIOTIC [Concomitant]
     Active Substance: PROBIOTICS NOS
  8. TAMSULOSIN [Concomitant]
     Active Substance: TAMSULOSIN
  9. AVODART [Suspect]
     Active Substance: DUTASTERIDE
     Indication: PROSTATOMEGALY
     Dosage: 0.5 MG, QD
     Route: 048
     Dates: start: 2007
  10. LEVOTHYROXINE [Concomitant]
     Active Substance: LEVOTHYROXINE
  11. ASPIRIN. [Concomitant]
     Active Substance: ASPIRIN
  12. MONTELUKAST [Concomitant]
     Active Substance: MONTELUKAST SODIUM
  13. ADVAIR HFA [Suspect]
     Active Substance: FLUTICASONE PROPIONATE\SALMETEROL XINAFOATE
     Indication: PULMONARY FIBROSIS
     Dosage: UNK
     Dates: start: 201012
  14. KLOR-CON [Concomitant]
     Active Substance: POTASSIUM CHLORIDE
  15. XARELTO [Concomitant]
     Active Substance: RIVAROXABAN

REACTIONS (5)
  - Pneumonia [Recovered/Resolved]
  - Drug ineffective [Unknown]
  - Pulmonary fibrosis [Recovering/Resolving]
  - Atrial fibrillation [Recovering/Resolving]
  - Heart rate increased [Recovered/Resolved]

NARRATIVE: CASE EVENT DATE: 201012
